FAERS Safety Report 20771226 (Version 1)
Quarter: 2022Q2

REPORT INFORMATION
  Report Type: Spontaneous
  Country: US (occurrence: US)
  Receive Date: 20220429
  Receipt Date: 20220429
  Transmission Date: 20220721
  Serious: No
  Sender: FDA-Public Use
  Company Number: US-PFIZER INC-202101110632

PATIENT
  Sex: Female

DRUGS (1)
  1. NORPACE CR [Suspect]
     Active Substance: DISOPYRAMIDE PHOSPHATE
     Dosage: UNK

REACTIONS (2)
  - Intentional product misuse [Unknown]
  - Cardiac disorder [Unknown]
